FAERS Safety Report 25895903 (Version 2)
Quarter: 2025Q4

REPORT INFORMATION
  Report Type: Report from Study
  Country: TR (occurrence: TR)
  Receive Date: 20251008
  Receipt Date: 20251024
  Transmission Date: 20260118
  Serious: Yes (Other)
  Sender: TEVA
  Company Number: TR-TEVA-VS-3378491

PATIENT
  Age: 72 Month
  Sex: Male

DRUGS (1)
  1. AMOXICILLIN\CLAVULANIC ACID [Suspect]
     Active Substance: AMOXICILLIN\CLAVULANIC ACID
     Indication: Product used for unknown indication
     Route: 065

REACTIONS (4)
  - Drug hypersensitivity [Unknown]
  - Rash maculo-papular [Unknown]
  - Angioedema [Unknown]
  - Urticaria [Unknown]
